FAERS Safety Report 11487537 (Version 1)
Quarter: 2015Q3

REPORT INFORMATION
  Report Type: Spontaneous
  Country: CA (occurrence: CA)
  Receive Date: 20150909
  Receipt Date: 20150909
  Transmission Date: 20151125
  Serious: No
  Sender: FDA-Public Use
  Company Number: CA-JAZZ-2015-CA-004565

PATIENT
  Sex: Female

DRUGS (11)
  1. XYREM [Suspect]
     Active Substance: SODIUM OXYBATE
     Dosage: 5.25 G, BID
     Route: 048
     Dates: start: 20090307, end: 2009
  2. XYREM [Suspect]
     Active Substance: SODIUM OXYBATE
     Dosage: 5 G, BID
     Route: 048
     Dates: start: 20091209, end: 2009
  3. XYREM [Suspect]
     Active Substance: SODIUM OXYBATE
     Dosage: 5 G, BID
     Route: 048
     Dates: start: 201401
  4. XYREM [Suspect]
     Active Substance: SODIUM OXYBATE
     Dosage: 2.25 G, BID
     Route: 048
     Dates: start: 201207, end: 2012
  5. XYREM [Suspect]
     Active Substance: SODIUM OXYBATE
     Dosage: 10.25 TOTAL NIGHTLY DOSE
     Route: 048
     Dates: start: 201305, end: 2013
  6. XYREM [Suspect]
     Active Substance: SODIUM OXYBATE
     Dosage: 4.75 G, BID
     Route: 048
     Dates: start: 20081016, end: 2008
  7. XYREM [Suspect]
     Active Substance: SODIUM OXYBATE
     Dosage: DOWN TITRATED DOSE
     Route: 048
     Dates: start: 201101, end: 201103
  8. XYREM [Suspect]
     Active Substance: SODIUM OXYBATE
     Indication: FIBROMYALGIA
     Dosage: 2.25 G, BID
     Route: 048
     Dates: start: 20071214, end: 200712
  9. XYREM [Suspect]
     Active Substance: SODIUM OXYBATE
     Dosage: 3 G, BID
     Route: 048
     Dates: start: 20120827, end: 2012
  10. XYREM [Suspect]
     Active Substance: SODIUM OXYBATE
     Dosage: DOSE ADJUSTMENTS
     Route: 048
     Dates: start: 200712, end: 200807
  11. XYREM [Suspect]
     Active Substance: SODIUM OXYBATE
     Dosage: 3.75 G, BID
     Route: 048
     Dates: start: 20121212, end: 2012

REACTIONS (9)
  - Lethargy [Recovering/Resolving]
  - Asthenia [Recovering/Resolving]
  - Hypersomnia [Recovering/Resolving]
  - Fatigue [Recovering/Resolving]
  - Disturbance in attention [Recovering/Resolving]
  - Confusional state [Recovering/Resolving]
  - Dizziness [Recovering/Resolving]
  - Gait disturbance [Recovering/Resolving]
  - Product use issue [Unknown]
